FAERS Safety Report 9980838 (Version 2)
Quarter: 2014Q1

REPORT INFORMATION
  Report Type: Report from Study
  Country: JP (occurrence: JP)
  Receive Date: 20140307
  Receipt Date: 20140307
  Transmission Date: 20141002
  Serious: Yes (Hospitalization, Other)
  Sender: FDA-Public Use
  Company Number: JP-009507513-1305JPN006479

PATIENT
  Age: 77 Year
  Sex: Male
  Weight: 66 kg

DRUGS (18)
  1. TEMODAL [Suspect]
     Indication: ANAPLASTIC ASTROCYTOMA
     Dosage: 75 MG/M2, QD
     Route: 048
     Dates: start: 20080520, end: 20080627
  2. TEMODAL [Suspect]
     Dosage: 150 MG/M2, QD
     Route: 048
     Dates: start: 20080730, end: 20080803
  3. TEMODAL [Suspect]
     Dosage: 200 MG/M2, QD
     Route: 048
     Dates: start: 20080827
  4. TEMODAL [Suspect]
     Dosage: 150 MG/M2, QD
     Route: 048
     Dates: start: 20090527, end: 20090531
  5. TEMODAL [Suspect]
     Dosage: 200 MG/M2, QD
     Route: 048
     Dates: start: 20090624, end: 20091102
  6. ALLYLESTRENOL [Suspect]
     Dosage: DAILY DOSE UNKNOWN
     Route: 048
     Dates: start: 20081118
  7. DEPAKENE [Suspect]
     Dosage: DAILY DOSE UNKNOWN, FORMULATION: POR
     Route: 048
  8. URIEF [Suspect]
     Dosage: DAILY DOSAGE UNKNOWN
     Route: 048
     Dates: start: 20081118
  9. BAKTAR [Concomitant]
     Indication: ANTIFUNGAL PROPHYLAXIS
     Dosage: DAILY DOSAGE UNKNOWN, FORMUALTION: POR
     Route: 048
     Dates: start: 20080520
  10. NAVOBAN [Concomitant]
     Indication: PROPHYLAXIS
     Dosage: DAILY DOSAGE UNKNOWN
     Route: 048
     Dates: start: 20080520, end: 20091102
  11. GASPORT D [Concomitant]
     Dosage: DAILY DOSAGE UNKNOWN
     Route: 048
  12. GASTER D [Concomitant]
     Dosage: DAILY DOSAGE UNKNOWN
     Route: 048
  13. LIDUC M [Concomitant]
     Dosage: DAILY DOSAGE UNKNOWN
     Route: 048
  14. PREDONINE [Concomitant]
     Dosage: DAILY DOSAGE UNKNOWN
     Route: 048
  15. MEVALOTIN [Concomitant]
     Dosage: DAILY DOSAGE UNKOWN, FORMULATION: POR
     Route: 048
     Dates: start: 20080520
  16. ISOBIDE [Concomitant]
     Dosage: DAILY DOSAGE UNKNOWN, FORMULATION: POR
     Route: 048
     Dates: start: 20080525
  17. PRIMPERAN [Concomitant]
     Dosage: DAILY DOSAGE UNKNOWN, FORMULATION: POR
     Route: 048
     Dates: start: 20080525
  18. MAGNESIUM OXIDE [Concomitant]
     Dosage: DAILY DOSAGE UNKNOWN, FORMULATION: POR
     Route: 048
     Dates: start: 20090209

REACTIONS (5)
  - Epilepsy [Recovered/Resolved]
  - Neurogenic bladder [Recovering/Resolving]
  - Hepatic function abnormal [Not Recovered/Not Resolved]
  - Lymphocyte count decreased [Recovering/Resolving]
  - Constipation [Not Recovered/Not Resolved]
